FAERS Safety Report 16197882 (Version 1)
Quarter: 2019Q2

REPORT INFORMATION
  Report Type: Spontaneous
  Country: FR (occurrence: FR)
  Receive Date: 20190415
  Receipt Date: 20190415
  Transmission Date: 20190711
  Serious: Yes (Hospitalization)
  Sender: FDA-Public Use
  Company Number: FR-MYLANLABS-2019M1034044

PATIENT
  Age: 54 Year
  Sex: Female
  Weight: 110 kg

DRUGS (18)
  1. CERIS [Concomitant]
     Active Substance: TROSPIUM CHLORIDE
  2. INEXIUM                            /01479302/ [Concomitant]
     Active Substance: ESOMEPRAZOLE MAGNESIUM
  3. IBUPROFENE [Concomitant]
     Active Substance: IBUPROFEN
  4. XARELTO [Concomitant]
     Active Substance: RIVAROXABAN
  5. TOPIRAMATE. [Suspect]
     Active Substance: TOPIRAMATE
     Indication: OBSESSIVE-COMPULSIVE DISORDER
     Dosage: 50 MILLIGRAM, QD
     Route: 048
     Dates: start: 20160302, end: 20160308
  6. VENTOLINE                          /00139502/ [Concomitant]
     Active Substance: ALBUTEROL SULFATE
  7. ATARAX [Concomitant]
     Active Substance: HYDROXYZINE HYDROCHLORIDE
  8. TOPIRAMATE INTAS [Suspect]
     Active Substance: TOPIRAMATE
     Dosage: 25 MILLIGRAM, QD
     Route: 048
     Dates: start: 20160217, end: 20160301
  9. XANAX [Concomitant]
     Active Substance: ALPRAZOLAM
  10. TERALITHE [Concomitant]
     Active Substance: LITHIUM CARBONATE
  11. LAMICTAL [Concomitant]
     Active Substance: LAMOTRIGINE
  12. LEVOTHYROX [Concomitant]
     Active Substance: LEVOTHYROXINE
  13. TOPIRAMATE INTAS [Suspect]
     Active Substance: TOPIRAMATE
     Indication: OBSESSIVE-COMPULSIVE DISORDER
     Dosage: 25 MILLIGRAM, QD
     Route: 048
     Dates: start: 20160309, end: 20160315
  14. SMECTA [Concomitant]
     Active Substance: MONTMORILLONITE
  15. AVLOCARDYL                         /00030002/ [Concomitant]
  16. INEXIUM                            /01479303/ [Concomitant]
     Active Substance: ESOMEPRAZOLE
  17. XEROQUEL [Concomitant]
     Active Substance: QUETIAPINE FUMARATE
  18. NASONEX [Concomitant]
     Active Substance: MOMETASONE FUROATE

REACTIONS (4)
  - Delusion [Recovered/Resolved]
  - Suicidal ideation [Recovered/Resolved]
  - Suspiciousness [Recovered/Resolved]
  - Mood altered [Recovered/Resolved]

NARRATIVE: CASE EVENT DATE: 201603
